FAERS Safety Report 8227954-X (Version None)
Quarter: 2012Q1

REPORT INFORMATION
  Report Type: 
  Country: None (occurrence: None)
  Receive Date: 20120322
  Receipt Date: 20120314
  Transmission Date: 20120608
  Serious: Yes (Other)
  Sender: FDA-Public Use
  Company Number: PHHY2012GB022636

PATIENT
  Sex: Male
  Weight: 78 kg

DRUGS (3)
  1. CIPROFLOXACIN [Suspect]
     Dosage: 500 MG, BID
     Route: 048
     Dates: start: 20120217, end: 20120229
  2. CIPROFLOXACIN [Suspect]
     Indication: URINARY TRACT INFECTION
     Route: 048
     Dates: start: 20100101
  3. DOXYCYCLINE [Concomitant]
     Indication: URINARY TRACT INFECTION
     Dosage: 100 MG, BID
     Dates: start: 20120217, end: 20120229

REACTIONS (3)
  - EYE PAIN [None]
  - VISUAL IMPAIRMENT [None]
  - OPTIC NEURITIS [None]
